FAERS Safety Report 6135546-1 (Version None)
Quarter: 2009Q1

REPORT INFORMATION
  Report Type: 
  Country: None (occurrence: None)
  Receive Date: 20090327
  Receipt Date: 20090327
  Transmission Date: 20090719
  Serious: Yes (Hospitalization)
  Sender: FDA-Public Use
  Company Number: B0567261A

PATIENT
  Age: 80 Year
  Sex: Female
  Weight: 63.5 kg

DRUGS (5)
  1. AMOXICILLIN [Suspect]
     Dosage: 1500MG PER DAY
     Route: 048
     Dates: start: 20090312, end: 20090312
  2. SALBUTAMOL [Concomitant]
     Route: 065
  3. SYMBICORT [Concomitant]
     Route: 065
  4. ATROVENT [Concomitant]
     Route: 065
  5. QUININE [Concomitant]
     Route: 065

REACTIONS (3)
  - DYSPNOEA [None]
  - HYPERSENSITIVITY [None]
  - WHEEZING [None]
